FAERS Safety Report 9895931 (Version 1)
Quarter: 2014Q1

REPORT INFORMATION
  Report Type: Spontaneous
  Country: US (occurrence: US)
  Receive Date: 20140213
  Receipt Date: 20140213
  Transmission Date: 20141002
  Serious: No
  Sender: FDA-Public Use
  Company Number: US-BRISTOL-MYERS SQUIBB COMPANY-17398645

PATIENT
  Age: 68 Year
  Sex: Female

DRUGS (8)
  1. ABATACEPT SUBQ INJECTION 125MG/ML [Suspect]
     Dosage: 1DF = 125MG/1ML
     Route: 058
  2. PREDNISONE [Concomitant]
     Dosage: TABS
  3. MULTIVITAMIN [Concomitant]
  4. CALCIUM [Concomitant]
     Dosage: 1DF = 600
  5. FISH OIL [Concomitant]
  6. VITAMIN D [Concomitant]
     Dosage: 1DF 1000UNITS
  7. IRON TABLETS [Concomitant]
  8. VITAMIN C [Concomitant]

REACTIONS (3)
  - Nasopharyngitis [Unknown]
  - Cough [Unknown]
  - Fatigue [Unknown]
